FAERS Safety Report 7861295-5 (Version None)
Quarter: 2011Q4

REPORT INFORMATION
  Report Type: 
  Country: None (occurrence: None)
  Receive Date: 20111027
  Receipt Date: 20111020
  Transmission Date: 20120403
  Serious: Yes (Death, Hospitalization)
  Sender: FDA-Public Use
  Company Number: JP-AMGEN-JPNCT2011051562

PATIENT
  Age: 62 Year
  Sex: Female
  Weight: 36 kg

DRUGS (17)
  1. CORTICOSTEROIDS [Concomitant]
     Indication: PROPHYLAXIS
     Dosage: UNK
  2. ZYRTEC [Concomitant]
     Dosage: UNK
     Route: 048
  3. ALDACTONE [Concomitant]
     Dosage: UNK
     Route: 048
  4. ZOLPIDEM [Concomitant]
     Dosage: UNK
     Route: 048
  5. UREPEARL [Concomitant]
     Dosage: UNK
     Route: 062
  6. MUCODYNE [Concomitant]
     Dosage: UNK
     Route: 048
  7. CLARITHROMYCIN [Concomitant]
     Dosage: UNK
     Route: 048
  8. BERASUS [Concomitant]
     Indication: BRONCHIECTASIS
     Dosage: UNK
     Route: 048
  9. RIZE [Concomitant]
     Dosage: UNK
     Route: 048
  10. LOXONIN [Concomitant]
     Dosage: UNK
     Route: 048
  11. RHYTHMY [Concomitant]
     Dosage: UNK
     Route: 048
  12. PANITUMUMAB [Suspect]
     Indication: COLORECTAL CANCER
     Dosage: 6 MG/KG, Q2WK
     Route: 041
     Dates: start: 20100820, end: 20110323
  13. FAMOTIDINE [Concomitant]
     Dosage: UNK
     Route: 048
  14. MUCOSOLVAN [Concomitant]
     Dosage: UNK
     Route: 048
  15. DASEN [Concomitant]
     Dosage: UNK
     Route: 048
  16. EURAX [Concomitant]
     Dosage: UNK
     Route: 062
  17. LASIX [Concomitant]
     Dosage: UNK
     Route: 048

REACTIONS (5)
  - CHRONIC OBSTRUCTIVE PULMONARY DISEASE [None]
  - CANCER PAIN [None]
  - COLORECTAL CANCER [None]
  - HYPOMAGNESAEMIA [None]
  - DRY SKIN [None]
